FAERS Safety Report 5504807-9 (Version None)
Quarter: 2007Q4

REPORT INFORMATION
  Report Type: 
  Country: None (occurrence: None)
  Receive Date: 20071031
  Receipt Date: 20071031
  Transmission Date: 20080405
  Serious: Yes (Other)
  Sender: FDA-Public Use
  Company Number: None

PATIENT
  Age: 43 Year
  Sex: Female
  Weight: 78.4723 kg

DRUGS (1)
  1. ALBUTEROL INHALATION AEROSOL 17GM90MCG ARMSTRONG PHARMACEUTICAQLS, [Suspect]
     Indication: ASTHMA
     Dosage: 2 PUFFS 4 TIMES DAILY PO  (DURATION: ONE TIME)
     Route: 048
     Dates: start: 20071030, end: 20071030

REACTIONS (2)
  - DRUG INEFFECTIVE [None]
  - PHARMACEUTICAL PRODUCT COMPLAINT [None]
